FAERS Safety Report 15339120 (Version 1)
Quarter: 2018Q3

REPORT INFORMATION
  Report Type: Spontaneous
  Country: US (occurrence: US)
  Receive Date: 20180831
  Receipt Date: 20180831
  Transmission Date: 20181010
  Serious: No
  Sender: FDA-Public Use
  Company Number: US-009507513-1808USA006902

PATIENT
  Age: 70 Year
  Sex: Female

DRUGS (2)
  1. PREGNYL [Suspect]
     Active Substance: CHORIOGONADOTROPIN ALFA
     Indication: MANAGEMENT OF REPRODUCTION
     Dosage: CONCENTRATION 10.000. 10.000USP UNITS 1 DOSE
     Route: 058
     Dates: start: 201807
  2. VITAMINS (UNSPECIFIED) [Concomitant]
     Active Substance: VITAMINS
     Route: 048

REACTIONS (2)
  - Chills [Unknown]
  - Infusion related reaction [Unknown]

NARRATIVE: CASE EVENT DATE: 201807
